FAERS Safety Report 4451693-4 (Version None)
Quarter: 2004Q3

REPORT INFORMATION
  Report Type: 
  Country: None (occurrence: None)
  Receive Date: 20040915
  Receipt Date: 20040901
  Transmission Date: 20050211
  Serious: Yes (Hospitalization)
  Sender: FDA-Public Use
  Company Number: FR-JNJFOC-20040900945

PATIENT
  Age: 62 Year
  Sex: Male

DRUGS (9)
  1. IMODIUM [Suspect]
     Indication: GASTROENTERITIS
     Dosage: ORAL
     Route: 048
     Dates: start: 20040410, end: 20040412
  2. LANSOPRAZOLE [Concomitant]
  3. BUFLOMEDIL (BUFLOMEDIL) [Concomitant]
  4. STRUCTUM (CHOINDROITIN SULFATE SODIUM) [Concomitant]
  5. OXAZEPAM [Concomitant]
  6. EQUANIL [Concomitant]
  7. MIOREL (THIOCOLCHICOSIDE) [Concomitant]
  8. FOSAMAX [Concomitant]
  9. CACIT (CACIT) [Concomitant]

REACTIONS (5)
  - ABDOMINAL PAIN [None]
  - CONSTIPATION [None]
  - DISCOMFORT [None]
  - FAECALOMA [None]
  - URINARY RETENTION [None]
